FAERS Safety Report 5074841-4 (Version None)
Quarter: 2006Q3

REPORT INFORMATION
  Report Type: 
  Country: None (occurrence: None)
  Receive Date: 20060809
  Receipt Date: 20060517
  Transmission Date: 20061208
  Serious: Yes (Hospitalization)
  Sender: FDA-Public Use
  Company Number: PHEH2006US06535

PATIENT
  Age: 89 Year
  Sex: Female
  Weight: 49.886 kg

DRUGS (4)
  1. BETAPACE [Concomitant]
     Indication: HEART RATE IRREGULAR
  2. PRAVACHOL [Concomitant]
     Indication: BLOOD CHOLESTEROL INCREASED
  3. TYLENOL W/ CODEINE [Concomitant]
  4. DIOVAN HCT [Suspect]
     Indication: HYPERTENSION
     Dosage: 160MG VAL/12.5MG HCT, QD
     Dates: start: 20060513, end: 20060515

REACTIONS (10)
  - ALANINE AMINOTRANSFERASE INCREASED [None]
  - ASPARTATE AMINOTRANSFERASE INCREASED [None]
  - BLOOD ALKALINE PHOSPHATASE INCREASED [None]
  - BLOOD BILIRUBIN INCREASED [None]
  - DEPRESSED LEVEL OF CONSCIOUSNESS [None]
  - HEPATIC ENZYME INCREASED [None]
  - HEPATIC FAILURE [None]
  - HEPATITIS [None]
  - LETHARGY [None]
  - LOSS OF CONSCIOUSNESS [None]
